FAERS Safety Report 6054995-3 (Version None)
Quarter: 2009Q1

REPORT INFORMATION
  Report Type: 
  Country: None (occurrence: None)
  Receive Date: 20090122
  Receipt Date: 20090109
  Transmission Date: 20090719
  Serious: Yes (Life-Threatening, Hospitalization, Other)
  Sender: FDA-Public Use
  Company Number: 2009US000072

PATIENT
  Age: 50 Year
  Sex: Male
  Weight: 128 kg

DRUGS (9)
  1. AMBISOME [Suspect]
     Indication: CANDIDIASIS
     Dosage: 300 MG, UID/QD, IV NOS
     Route: 042
     Dates: start: 20081030
  2. MORPHINE [Concomitant]
  3. HEPARIN [Concomitant]
  4. ERYTHROMYCIN [Concomitant]
  5. TRIFULCAN (FLUCONAZOLE) [Concomitant]
  6. VANCOCINE (VANCOMYCIN HYDROCHLORIDE) [Concomitant]
  7. RIFADINE (RIFAMPICIN SODIUM) [Concomitant]
  8. PERFALFAN [Concomitant]
  9. MOPRAL (OMEPRAZOLE SODIUM) [Concomitant]

REACTIONS (4)
  - BRONCHOSPASM [None]
  - DIARRHOEA [None]
  - HYPOTENSION [None]
  - OXYGEN SATURATION DECREASED [None]
